FAERS Safety Report 7656068-2 (Version None)
Quarter: 2011Q3

REPORT INFORMATION
  Report Type: 
  Country: None (occurrence: None)
  Receive Date: 20110804
  Receipt Date: 20110722
  Transmission Date: 20111222
  Serious: Yes (Other)
  Sender: FDA-Public Use
  Company Number: FR-ELI_LILLY_AND_COMPANY-FR201107006349

PATIENT
  Age: 46 Year
  Sex: Male

DRUGS (2)
  1. ZYPREXA [Suspect]
     Dosage: 10 MG, BID
  2. OLANZAPINE [Suspect]
     Dosage: 300 MG, UNKNOWN
     Route: 030

REACTIONS (1)
  - MYOCARDIAL INFARCTION [None]
